FAERS Safety Report 16100344 (Version 2)
Quarter: 2019Q2

REPORT INFORMATION
  Report Type: Spontaneous
  Country: US (occurrence: US)
  Receive Date: 20190321
  Receipt Date: 20190607
  Transmission Date: 20190711
  Serious: No
  Sender: FDA-Public Use
  Company Number: US-PFIZER INC-2019120501

PATIENT
  Age: 55 Year
  Sex: Male

DRUGS (2)
  1. SUTENT [Suspect]
     Active Substance: SUNITINIB MALATE
     Indication: RENAL CANCER
     Dosage: 37.5 MG, CYCLIC (4 WEEKS ON AND 2 WEEKS OFF)
     Route: 048
     Dates: start: 201902
  2. SUTENT [Suspect]
     Active Substance: SUNITINIB MALATE
     Dosage: 37.5 MG, CYCLIC(TAKE 1 CAPSULE BY MOUTH DAILY FOR 4 WEEKS ON AND 2 WEEKS OFF)
     Route: 048
     Dates: start: 201903

REACTIONS (12)
  - Gastrooesophageal reflux disease [Unknown]
  - Stomatitis [Unknown]
  - Taste disorder [Unknown]
  - Skin discolouration [Unknown]
  - Gastritis [Unknown]
  - Asthenia [Unknown]
  - Pain in extremity [Unknown]
  - Skin irritation [Unknown]
  - Fatigue [Unknown]
  - Dyspepsia [Unknown]
  - Yellow skin [Unknown]
  - Erythema [Unknown]

NARRATIVE: CASE EVENT DATE: 2019
